FAERS Safety Report 23730259 (Version 1)
Quarter: 2024Q2

REPORT INFORMATION
  Report Type: Other
  Country: CA (occurrence: CA)
  Receive Date: 20240411
  Receipt Date: 20240411
  Transmission Date: 20240715
  Serious: Yes (Other)
  Sender: FDA-Public Use
  Company Number: None

PATIENT

DRUGS (1)
  1. ADALIMUMAB [Suspect]
     Active Substance: ADALIMUMAB\ISOPROPYL ALCOHOL
     Indication: Ankylosing spondylitis
     Dosage: 40 MILLIGRAM, Q2W (1 EVERY 2 WEEKS)
     Route: 065

REACTIONS (4)
  - Inflammatory bowel disease [Unknown]
  - Ankylosing spondylitis [Unknown]
  - Drug level decreased [Unknown]
  - Therapeutic response shortened [Unknown]
